FAERS Safety Report 7952871-X (Version None)
Quarter: 2011Q4

REPORT INFORMATION
  Report Type: 
  Country: None (occurrence: None)
  Receive Date: 20111201
  Receipt Date: 20111125
  Transmission Date: 20120403
  Serious: Yes (Life-Threatening, Hospitalization)
  Sender: FDA-Public Use
  Company Number: US-BAYER-2011-009135

PATIENT
  Age: 48 Year
  Sex: Female
  Weight: 48.98 kg

DRUGS (1)
  1. YAZ [Suspect]
     Dosage: UNK
     Dates: start: 20070101, end: 20090201

REACTIONS (2)
  - MYOCARDIAL INFARCTION [None]
  - PAIN [None]
